FAERS Safety Report 7930882-8 (Version None)
Quarter: 2011Q4

REPORT INFORMATION
  Report Type: 
  Country: None (occurrence: None)
  Receive Date: 20111108
  Receipt Date: 20101005
  Transmission Date: 20120403
  Serious: Yes (Death, Hospitalization)
  Sender: FDA-Public Use
  Company Number: PHHY2010US66469

PATIENT
  Age: 61 Year
  Sex: Male
  Weight: 80.3 kg

DRUGS (9)
  1. ATENOLOL [Concomitant]
  2. VITAMIN B12 [Concomitant]
  3. DEXAMETHASONE [Concomitant]
  4. ENALAPRIL MALEATE [Concomitant]
  5. LEXAPRO [Concomitant]
  6. ZOMETA [Suspect]
     Indication: METASTASES TO BONE
     Dosage: 4 MG, EVERY 3 WEEKS, INTRAVENOUS ; 3 MG, EVERY 3 WEEKS, INTRAVENOUS
     Route: 042
     Dates: start: 20100514
  7. ZOMETA [Suspect]
     Indication: METASTASES TO BONE
     Dosage: 4 MG, EVERY 3 WEEKS, INTRAVENOUS ; 3 MG, EVERY 3 WEEKS, INTRAVENOUS
     Route: 042
     Dates: start: 20100609
  8. ALIMTA [Concomitant]
  9. ANZEMET [Concomitant]

REACTIONS (3)
  - LUNG CARCINOMA CELL TYPE UNSPECIFIED STAGE IV [None]
  - METASTASES TO LIVER [None]
  - NEOPLASM MALIGNANT [None]
